FAERS Safety Report 16372941 (Version 2)
Quarter: 2019Q3

REPORT INFORMATION
  Report Type: Report from Study
  Country: JP (occurrence: JP)
  Receive Date: 20190530
  Receipt Date: 20190702
  Transmission Date: 20191004
  Serious: Yes (Other)
  Sender: FDA-Public Use
  Company Number: PHJP2019JP005751

PATIENT
  Age: 50 Year
  Sex: Male

DRUGS (4)
  1. FARYDAK [Suspect]
     Active Substance: PANOBINOSTAT
     Indication: PLASMA CELL MYELOMA
     Dosage: 20 MG, QD
     Route: 048
     Dates: start: 20150925, end: 20151019
  2. FARYDAK [Suspect]
     Active Substance: PANOBINOSTAT
     Dosage: 15 MG, QD
     Route: 048
     Dates: start: 20160401, end: 20160601
  3. FARYDAK [Suspect]
     Active Substance: PANOBINOSTAT
     Dosage: 10 MG, QD
     Route: 048
     Dates: start: 20160115, end: 20160210
  4. FARYDAK [Suspect]
     Active Substance: PANOBINOSTAT
     Dosage: 15 MG, QD
     Route: 048
     Dates: start: 20160311, end: 20160316

REACTIONS (1)
  - Renal impairment [Not Recovered/Not Resolved]

NARRATIVE: CASE EVENT DATE: 20151021
